FAERS Safety Report 15838282 (Version 3)
Quarter: 2019Q1

REPORT INFORMATION
  Report Type: Report from Study
  Country: SE (occurrence: SE)
  Receive Date: 20190117
  Receipt Date: 20190220
  Transmission Date: 20190417
  Serious: Yes (Hospitalization, Other)
  Sender: FDA-Public Use
  Company Number: PHHY2019SE006576

PATIENT
  Age: 14 Year
  Sex: Female
  Weight: 36.7 kg

DRUGS (4)
  1. MEKINIST [Suspect]
     Active Substance: TRAMETINIB DIMETHYL SULFOXIDE
     Dosage: 0.875 MG, QD
     Route: 048
     Dates: start: 20190213
  2. MEKINIST [Suspect]
     Active Substance: TRAMETINIB DIMETHYL SULFOXIDE
     Indication: GLIOMA
     Dosage: 0.875 MG, QD
     Route: 048
     Dates: start: 20181206
  3. NO TREATMENT RECEIVED [Suspect]
     Active Substance: UNSPECIFIED INGREDIENT
     Indication: PRODUCT USED FOR UNKNOWN INDICATION
     Route: 065
  4. MEKINIST [Suspect]
     Active Substance: TRAMETINIB DIMETHYL SULFOXIDE
     Dosage: 0.875 MG, QD
     Route: 048
     Dates: start: 20190109

REACTIONS (14)
  - Skin infection [Recovered/Resolved]
  - Abdominal pain upper [Recovered/Resolved]
  - Diarrhoea [Recovered/Resolved]
  - Pneumococcal infection [Recovered/Resolved]
  - Rash [Not Recovered/Not Resolved]
  - Upper respiratory tract infection [Recovered/Resolved]
  - Staphylococcal infection [Recovered/Resolved]
  - Pain of skin [Not Recovered/Not Resolved]
  - Paronychia [Not Recovered/Not Resolved]
  - Folliculitis [Unknown]
  - Erythema [Not Recovered/Not Resolved]
  - Skin reaction [Not Recovered/Not Resolved]
  - Pruritus [Not Recovered/Not Resolved]
  - Pyrexia [Recovered/Resolved]

NARRATIVE: CASE EVENT DATE: 20181206
